FAERS Safety Report 5509210-3 (Version None)
Quarter: 2007Q4

REPORT INFORMATION
  Report Type: 
  Country: None (occurrence: None)
  Receive Date: 20071107
  Receipt Date: 20071029
  Transmission Date: 20080405
  Serious: Yes (Other)
  Sender: FDA-Public Use
  Company Number: US-ELI_LILLY_AND_COMPANY-US200706003577

PATIENT
  Sex: Male
  Weight: 129.25 kg

DRUGS (15)
  1. BYETTA [Suspect]
     Dosage: 5 UG, 2/D
     Route: 058
     Dates: start: 20050720, end: 20050820
  2. BYETTA [Suspect]
     Dosage: 10 UG, 2/D
     Route: 058
     Dates: start: 20050820
  3. ACTOS [Concomitant]
     Indication: DIABETES MELLITUS
     Dosage: 30 MG, UNKNOWN
     Route: 065
     Dates: start: 20050720, end: 20060419
  4. ACTOS [Concomitant]
     Dosage: UNK, UNKNOWN
     Route: 065
  5. METFORMIN HCL [Concomitant]
     Indication: DIABETES MELLITUS
     Dosage: 1 G, 2/D
     Route: 065
     Dates: start: 20050720, end: 20060419
  6. METFORMIN HCL [Concomitant]
     Dosage: UNK, UNKNOWN
     Route: 065
  7. GLUCOTROL [Concomitant]
     Dosage: 5 MG, 2/D
     Route: 065
     Dates: start: 20060419
  8. VYTORIN [Concomitant]
     Indication: BLOOD CHOLESTEROL
  9. LISINOPRIL [Concomitant]
     Indication: BLOOD PRESSURE
     Dosage: 20 MG, UNKNOWN
     Route: 065
     Dates: start: 20051229
  10. NORVASC [Concomitant]
     Indication: BLOOD PRESSURE
  11. HYDROCHLOROTHIAZIDE [Concomitant]
     Indication: BLOOD PRESSURE
  12. GLUCOPHAGE [Concomitant]
     Dosage: 2 G, UNKNOWN
     Route: 065
     Dates: start: 20050720, end: 20060824
  13. ZOCOR [Concomitant]
     Dosage: 40 UG, UNKNOWN
     Route: 065
     Dates: start: 20050720
  14. SYNTHROID [Concomitant]
     Dosage: 0.05 MG, UNKNOWN
     Route: 065
     Dates: start: 20060419
  15. LYRICA [Concomitant]
     Dosage: 150 MG, 2/D
     Route: 065
     Dates: start: 20060419

REACTIONS (6)
  - ABDOMINAL PAIN UPPER [None]
  - INJECTION SITE BRUISING [None]
  - INJECTION SITE PAIN [None]
  - PANCREATIC ENZYMES INCREASED [None]
  - PANCREATITIS [None]
  - WEIGHT INCREASED [None]
